FAERS Safety Report 6499853-5 (Version None)
Quarter: 2009Q4

REPORT INFORMATION
  Report Type: 
  Country: None (occurrence: None)
  Receive Date: 20091214
  Receipt Date: 20091214
  Transmission Date: 20100525
  Serious: Yes (Death)
  Sender: FDA-Public Use
  Company Number: None

PATIENT
  Age: 53 Year
  Sex: Male
  Weight: 72.5755 kg

DRUGS (2)
  1. ABILIFY [Suspect]
     Indication: SLEEP DISORDER
     Dosage: 1 PILL DAY OTHER
     Route: 050
     Dates: start: 20090515, end: 20090720
  2. ABILIFY [Suspect]
     Indication: SLEEP DISORDER
     Dosage: 1/2 PILL DAY OTHER
     Route: 050
     Dates: start: 20090720, end: 20090830

REACTIONS (2)
  - MALAISE [None]
  - MYOCARDIAL INFARCTION [None]
